FAERS Safety Report 8913930 (Version 5)
Quarter: 2013Q2

REPORT INFORMATION
  Report Type: Spontaneous
  Country: US (occurrence: US)
  Receive Date: 20121119
  Receipt Date: 20130502
  Transmission Date: 20140414
  Serious: No
  Sender: FDA-Public Use
  Company Number: US-009507513-1211USA007151

PATIENT
  Sex: Female

DRUGS (5)
  1. PEGINTRON [Suspect]
     Indication: HEPATITIS C
     Dosage: UNK
     Dates: start: 20091030, end: 20100401
  2. PEGINTRON [Suspect]
     Dosage: UNK
     Dates: start: 20121118, end: 20130405
  3. REBETOL [Suspect]
     Indication: HEPATITIS C
     Dosage: UNK
     Route: 048
     Dates: start: 20091030, end: 20100401
  4. REBETOL [Suspect]
     Dosage: UNK, UNKNOWN
     Route: 048
     Dates: start: 20121118, end: 20130405
  5. VICTRELIS [Suspect]
     Indication: HEPATITIS C
     Dosage: UNK
     Route: 048
     Dates: start: 20130128, end: 20130405

REACTIONS (9)
  - Drug dose omission [Unknown]
  - Weight decreased [Unknown]
  - Malaise [Unknown]
  - Rash [Unknown]
  - Malaise [Unknown]
  - Headache [Unknown]
  - Drug ineffective [Unknown]
  - White blood cell count decreased [Unknown]
  - Drug ineffective [Unknown]
